FAERS Safety Report 17987810 (Version 1)
Quarter: 2020Q3

REPORT INFORMATION
  Report Type: Spontaneous
  Country: FR (occurrence: FR)
  Receive Date: 20200707
  Receipt Date: 20200707
  Transmission Date: 20201103
  Serious: Yes (Other)
  Sender: FDA-Public Use
  Company Number: NVSC2020FR190287

PATIENT
  Sex: Female

DRUGS (1)
  1. GILENYA [Suspect]
     Active Substance: FINGOLIMOD HYDROCHLORIDE
     Indication: MULTIPLE SCLEROSIS
     Dosage: UNK (1 CP 1J/2)
     Route: 048
     Dates: start: 201306, end: 20200301

REACTIONS (3)
  - Hypogammaglobulinaemia [Recovered/Resolved]
  - Dental caries [Recovered/Resolved with Sequelae]
  - Anogenital warts [Recovered/Resolved]

NARRATIVE: CASE EVENT DATE: 2019
